FAERS Safety Report 8543839-3 (Version None)
Quarter: 2012Q3

REPORT INFORMATION
  Report Type: 
  Country: None (occurrence: None)
  Receive Date: 20120727
  Receipt Date: 20120723
  Transmission Date: 20120928
  Serious: Yes (Life-Threatening, Hospitalization, Other)
  Sender: FDA-Public Use
  Company Number: FR-PFIZER INC-2012176871

PATIENT
  Age: 31 Year
  Sex: Male

DRUGS (3)
  1. METHADONE HYDROCHLORIDE [Concomitant]
     Dosage: UNK
  2. XANAX [Suspect]
     Dosage: UNK
     Route: 048
     Dates: end: 20120622
  3. TERCIAN [Suspect]
     Dosage: UNK
     Route: 048
     Dates: end: 20120622

REACTIONS (5)
  - RHABDOMYOLYSIS [None]
  - COMA [None]
  - TOXICITY TO VARIOUS AGENTS [None]
  - MIOSIS [None]
  - INTENTIONAL DRUG MISUSE [None]
